FAERS Safety Report 16789747 (Version 1)
Quarter: 2019Q3

REPORT INFORMATION
  Report Type: Spontaneous
  Country: US (occurrence: US)
  Receive Date: 20190718
  Receipt Date: 20190718
  Transmission Date: 20191005
  Serious: Yes (Hospitalization)
  Sender: FDA-Public Use
  Company Number: None

PATIENT
  Age: 75 Year
  Sex: Male
  Weight: 98.6 kg

DRUGS (3)
  1. LEUCOVORIN CALCIUM. [Suspect]
     Active Substance: LEUCOVORIN CALCIUM
     Dates: end: 20190701
  2. ELOXATIN [Suspect]
     Active Substance: OXALIPLATIN
     Dates: end: 20190701
  3. 5-FLUOROURACIL (5-FU) [Suspect]
     Active Substance: FLUOROURACIL
     Dates: end: 20190703

REACTIONS (11)
  - Thrombocytopenia [None]
  - Hyponatraemia [None]
  - Troponin increased [None]
  - Gastroenteritis bacterial [None]
  - Ascites [None]
  - Septic shock [None]
  - Cirrhosis alcoholic [None]
  - Coagulopathy [None]
  - Diarrhoea [None]
  - Dehydration [None]
  - Hypokalaemia [None]

NARRATIVE: CASE EVENT DATE: 20190711
